FAERS Safety Report 6793976-9 (Version None)
Quarter: 2010Q2

REPORT INFORMATION
  Report Type: 
  Country: None (occurrence: None)
  Receive Date: 20100624
  Receipt Date: 20070220
  Transmission Date: 20101027
  Serious: No
  Sender: FDA-Public Use
  Company Number: US-PFIZER INC-ENC200700028

PATIENT
  Sex: Male
  Weight: 78 kg

DRUGS (10)
  1. ARGATROBAN [Suspect]
     Indication: HEPARIN-INDUCED THROMBOCYTOPENIA
     Dosage: 78 UG PER MIN
     Route: 042
     Dates: start: 20070217, end: 20070302
  2. WARFARIN SODIUM [Concomitant]
  3. METOPROLOL [Concomitant]
  4. LISINOPRIL [Concomitant]
  5. SERTRALINE HCL [Concomitant]
  6. LEVOTHYROXINE SODIUM [Concomitant]
  7. POTASSIUM CHLORIDE [Concomitant]
  8. DOXAZOSIN MESYLATE [Concomitant]
  9. CEFTRIAXONE [Concomitant]
  10. CASPOFUNGIN ACETATE [Concomitant]

REACTIONS (1)
  - COAGULATION TIME ABNORMAL [None]
